FAERS Safety Report 5787416-6 (Version None)
Quarter: 2008Q2

REPORT INFORMATION
  Report Type: 
  Country: None (occurrence: None)
  Receive Date: 20080625
  Receipt Date: 20080620
  Transmission Date: 20081010
  Serious: Yes (Other)
  Sender: FDA-Public Use
  Company Number: CN-ASTRAZENECA-2008AP04528

PATIENT
  Age: 40 Year
  Sex: Male

DRUGS (3)
  1. IRESSA [Suspect]
     Indication: LUNG ADENOCARCINOMA
     Route: 048
     Dates: start: 20070501, end: 20070901
  2. IRESSA [Suspect]
     Route: 048
     Dates: start: 20071201, end: 20080501
  3. CHEMOTHERAPY [Concomitant]

REACTIONS (9)
  - AGITATION [None]
  - APHASIA [None]
  - CONFUSIONAL STATE [None]
  - DEPRESSED LEVEL OF CONSCIOUSNESS [None]
  - GAIT DISTURBANCE [None]
  - LARYNGOSPASM [None]
  - PARALYSIS [None]
  - PYREXIA [None]
  - VISION BLURRED [None]
